FAERS Safety Report 7043807-7 (Version None)
Quarter: 2010Q4

REPORT INFORMATION
  Report Type: 
  Country: None (occurrence: None)
  Receive Date: 20101012
  Receipt Date: 20101012
  Transmission Date: 20110411
  Serious: No
  Sender: FDA-Public Use
  Company Number: None

PATIENT
  Age: 23 Year
  Sex: Female
  Weight: 51.2565 kg

DRUGS (1)
  1. HALDOL [Suspect]
     Dosage: PO X 1 DOSE
     Route: 048

REACTIONS (5)
  - DYSTONIA [None]
  - JAW DISORDER [None]
  - MUSCLE SPASMS [None]
  - PARAESTHESIA ORAL [None]
  - VISUAL IMPAIRMENT [None]
